FAERS Safety Report 17088366 (Version 2)
Quarter: 2020Q3

REPORT INFORMATION
  Report Type: Spontaneous
  Country: FR (occurrence: FR)
  Receive Date: 20191128
  Receipt Date: 20200804
  Transmission Date: 20201102
  Serious: Yes (Hospitalization, Other)
  Sender: FDA-Public Use
  Company Number: PT-SUNOVION-2019SUN005207

PATIENT

DRUGS (8)
  1. ZEBINIX [Suspect]
     Active Substance: ESLICARBAZEPINE ACETATE
     Indication: EPILEPSY
     Dosage: 400 MILLIGRAM, DAILY
     Route: 048
     Dates: end: 2019
  2. EFFEXOR [Concomitant]
     Active Substance: VENLAFAXINE HYDROCHLORIDE
     Route: 065
  3. FYCOMPA [Suspect]
     Active Substance: PERAMPANEL
     Indication: EPILEPSY
     Dosage: 2 MG PER DAY FOR 2 WEEKS AND THEN 4 MG PER DAY
     Route: 048
     Dates: start: 201802, end: 201810
  4. FYCOMPA [Suspect]
     Active Substance: PERAMPANEL
     Dosage: 2 MILLIGRAM, DAILY
     Route: 048
     Dates: start: 201907, end: 201909
  5. TRILEPTAL [Concomitant]
     Active Substance: OXCARBAZEPINE
     Indication: EPILEPSY
     Dosage: 460 MG IN THE MORNING AND 600 MG IN THE EVENING
     Route: 048
  6. FYCOMPA [Suspect]
     Active Substance: PERAMPANEL
     Dosage: 2 MILLIGRAM, DAILY
     Route: 048
     Dates: start: 201811, end: 201904
  7. VIMPAT [Concomitant]
     Active Substance: LACOSAMIDE
     Indication: EPILEPSY
     Dosage: 300 MILLIGRAM, DAILY
     Route: 048
  8. ZONEGRAN [Concomitant]
     Active Substance: ZONISAMIDE
     Dosage: 300 MILLIGRAM, DAILY
     Route: 065

REACTIONS (4)
  - Sleep apnoea syndrome [Recovered/Resolved]
  - Seizure [Unknown]
  - Labelled drug-drug interaction medication error [Unknown]
  - Parasomnia [Recovering/Resolving]

NARRATIVE: CASE EVENT DATE: 201805
